FAERS Safety Report 13211957 (Version 1)
Quarter: 2017Q1

REPORT INFORMATION
  Report Type: Spontaneous
  Country: US (occurrence: US)
  Receive Date: 20170210
  Receipt Date: 20170210
  Transmission Date: 20170428
  Serious: Yes (Other)
  Sender: FDA-Public Use
  Company Number: None

PATIENT
  Age: 62 Year
  Sex: Female
  Weight: 90.72 kg

DRUGS (1)
  1. AMLODIPINE BESYLATE 2.5MG/5MG [Suspect]
     Active Substance: AMLODIPINE BESYLATE
     Indication: HYPERTENSION
     Dates: start: 20140929, end: 20160324

REACTIONS (9)
  - Weight increased [None]
  - Asthenia [None]
  - Essential tremor [None]
  - Somnolence [None]
  - Impaired work ability [None]
  - Condition aggravated [None]
  - Feeling abnormal [None]
  - Fatigue [None]
  - Sleep apnoea syndrome [None]
